FAERS Safety Report 4457129-1 (Version None)
Quarter: 2004Q3

REPORT INFORMATION
  Report Type: 
  Country: None (occurrence: None)
  Receive Date: 20040825
  Receipt Date: 20040510
  Transmission Date: 20050211
  Serious: No
  Sender: FDA-Public Use
  Company Number: 206589

PATIENT
  Age: 19 Year
  Sex: Female

DRUGS (3)
  1. RAPTIVA [Suspect]
     Dosage: 1 MG/KG 1/WEEK SUBCUTANEOUS
     Route: 058
     Dates: start: 20040101
  2. METHOTREXATE [Concomitant]
  3. BIRTH CONTROL PILLS NOS (ORAL CONTRACEPTIVE) [Concomitant]

REACTIONS (1)
  - MUSCLE CRAMP [None]
